FAERS Safety Report 13549604 (Version 2)
Quarter: 2017Q2

REPORT INFORMATION
  Report Type: Report from Study
  Country: BR (occurrence: BR)
  Receive Date: 20170516
  Receipt Date: 20170623
  Transmission Date: 20170830
  Serious: Yes (Other)
  Sender: FDA-Public Use
  Company Number: PHHY2017BR070862

PATIENT
  Sex: Male

DRUGS (1)
  1. EXELON PATCH [Suspect]
     Active Substance: RIVASTIGMINE
     Indication: PRODUCT USED FOR UNKNOWN INDICATION
     Route: 062

REACTIONS (7)
  - Movement disorder [Unknown]
  - Fall [Unknown]
  - Abasia [Unknown]
  - Atrophy [Unknown]
  - Product adhesion issue [Unknown]
  - Expired product administered [Unknown]
  - Parkinson^s disease [Unknown]
